FAERS Safety Report 8001850-5 (Version None)
Quarter: 2011Q4

REPORT INFORMATION
  Report Type: 
  Country: None (occurrence: None)
  Receive Date: 20111222
  Receipt Date: 20111220
  Transmission Date: 20120403
  Serious: Yes (Hospitalization)
  Sender: FDA-Public Use
  Company Number: JP-ALEXION-A201101921

PATIENT
  Age: 71 Year
  Sex: Female

DRUGS (5)
  1. NORVASC [Concomitant]
  2. SLOW-FE [Concomitant]
  3. SOLIRIS [Suspect]
     Indication: PAROXYSMAL NOCTURNAL HAEMOGLOBINURIA
     Dosage: 900 MG, Q4W
     Route: 042
     Dates: start: 20110223
  4. PREDNISOLONE [Concomitant]
  5. DANAZOL [Concomitant]

REACTIONS (1)
  - PNEUMONIA [None]
